FAERS Safety Report 12211764 (Version 2)
Quarter: 2017Q4

REPORT INFORMATION
  Report Type: Spontaneous
  Country: JP (occurrence: JP)
  Receive Date: 20160325
  Receipt Date: 20171123
  Transmission Date: 20180320
  Serious: Yes (Hospitalization)
  Sender: FDA-Public Use
  Company Number: JP-ELI_LILLY_AND_COMPANY-JP201603007642

PATIENT
  Age: 76 Year
  Sex: Male
  Weight: 44 kg

DRUGS (11)
  1. LYRICA [Concomitant]
     Active Substance: PREGABALIN
     Indication: NEURALGIA
     Dosage: 75 MG, BID
     Route: 048
     Dates: start: 20151106, end: 20151205
  2. CALONAL [Concomitant]
     Active Substance: ACETAMINOPHEN
     Indication: PAIN
     Dosage: 600 MG, QID
     Route: 050
     Dates: start: 20151029, end: 20151205
  3. ERBITUX [Suspect]
     Active Substance: CETUXIMAB
     Indication: PRODUCT USED FOR UNKNOWN INDICATION
     Dosage: 550 MG, WEEKLY (1/W)
     Route: 042
     Dates: start: 20151001, end: 20151001
  4. MINOMYCIN [Concomitant]
     Active Substance: MINOCYCLINE HYDROCHLORIDE
     Indication: PROPHYLAXIS
     Dosage: 100 MG, BID
     Route: 050
     Dates: start: 20150929, end: 20151205
  5. WARFARIN K [Concomitant]
     Active Substance: WARFARIN POTASSIUM
     Indication: ATRIAL FIBRILLATION
     Dosage: 1.5 MG, QD
     Route: 050
     Dates: end: 20151205
  6. PONSTEL [Concomitant]
     Active Substance: MEFENAMIC ACID
     Indication: PAIN
     Dosage: 8 ML, TID
     Route: 050
     Dates: start: 20150929, end: 20151205
  7. ERBITUX [Suspect]
     Active Substance: CETUXIMAB
     Dosage: 340 MG, WEEKLY (1/W)
     Route: 042
     Dates: start: 20151008, end: 20151126
  8. LENDORMIN [Concomitant]
     Active Substance: BROTIZOLAM
     Indication: INSOMNIA
     Dosage: .25 MG, QD
     Route: 050
     Dates: start: 20151027, end: 20151205
  9. CONIEL [Concomitant]
     Active Substance: BENIDIPINE HYDROCHLORIDE
     Indication: HYPERTENSION
     Dosage: 4 MG, QD
     Route: 050
     Dates: start: 20150930, end: 20151205
  10. TAKEPRON [Concomitant]
     Active Substance: LANSOPRAZOLE
     Indication: GASTRIC ULCER
     Dosage: 30 MG, QD
     Route: 050
     Dates: end: 20151205
  11. AZILSARTAN [Concomitant]
     Active Substance: AZILSARTAN KAMEDOXOMIL
     Indication: HYPERTENSION
     Dosage: 40 MG, QD
     Route: 050
     Dates: end: 20151205

REACTIONS (1)
  - Pneumonia aspiration [Recovering/Resolving]

NARRATIVE: CASE EVENT DATE: 20151109
